FAERS Safety Report 7193590-X (Version None)
Quarter: 2010Q4

REPORT INFORMATION
  Report Type: 
  Country: None (occurrence: None)
  Receive Date: 20101223
  Receipt Date: 20101214
  Transmission Date: 20110411
  Serious: Yes (Congenital Anomaly)
  Sender: FDA-Public Use
  Company Number: GB-TEVA-258703ISR

PATIENT

DRUGS (2)
  1. SERTRALINE HYDROCHLORIDE [Suspect]
     Indication: DEPRESSION
     Route: 064
     Dates: start: 20101027
  2. SERTRALINE HYDROCHLORIDE [Suspect]
     Route: 064
     Dates: end: 20101027

REACTIONS (1)
  - ANENCEPHALY [None]
